FAERS Safety Report 18595657 (Version 2)
Quarter: 2021Q2

REPORT INFORMATION
  Report Type: Spontaneous
  Country: US (occurrence: US)
  Receive Date: 20201209
  Receipt Date: 20210511
  Transmission Date: 20210717
  Serious: No
  Sender: FDA-Public Use
  Company Number: US-PFIZER INC-2020465926

PATIENT
  Age: 58 Year
  Sex: Female
  Weight: 99.79 kg

DRUGS (10)
  1. IBRANCE [Suspect]
     Active Substance: PALBOCICLIB
     Indication: BREAST CANCER STAGE IV
     Dosage: 100 MG, CYCLIC (100MG TABLET ONCE A DAY BY MOUTH FOR 21 DAYS AND THEN 7 DAYS OFF)
     Route: 048
     Dates: start: 20191118
  2. VITAMIN C ACID [Concomitant]
     Active Substance: ASCORBIC ACID
  3. CALCIUM CARBONATE. [Concomitant]
     Active Substance: CALCIUM CARBONATE
  4. TYLENOL [Concomitant]
     Active Substance: ACETAMINOPHEN
  5. LEVOTHYROXINE. [Concomitant]
     Active Substance: LEVOTHYROXINE
     Indication: THYROID DISORDER
     Dosage: 0.112 MG, 1X/DAY (0.112MG TABLET ONCE A DAY BY MOUTH)
     Route: 048
  6. VITAMIN D3 [Concomitant]
     Active Substance: CHOLECALCIFEROL
  7. IBRANCE [Suspect]
     Active Substance: PALBOCICLIB
     Dosage: 100 MG
     Dates: start: 202003
  8. ALEVE [Concomitant]
     Active Substance: NAPROXEN SODIUM
  9. IBUPROFEN. [Concomitant]
     Active Substance: IBUPROFEN
  10. MULTIVITAMINS [VITAMINS NOS] [Concomitant]
     Active Substance: VITAMINS

REACTIONS (8)
  - Dysgeusia [Not Recovered/Not Resolved]
  - Rash [Unknown]
  - Red blood cell count decreased [Unknown]
  - Impaired healing [Unknown]
  - Nausea [Unknown]
  - Contusion [Unknown]
  - Neutrophil count decreased [Unknown]
  - White blood cell count decreased [Unknown]

NARRATIVE: CASE EVENT DATE: 20201124
